FAERS Safety Report 7020656-7 (Version None)
Quarter: 2010Q3

REPORT INFORMATION
  Report Type: 
  Country: None (occurrence: None)
  Receive Date: 20100929
  Receipt Date: 20100922
  Transmission Date: 20110219
  Serious: Yes (Hospitalization)
  Sender: FDA-Public Use
  Company Number: B0676773A

PATIENT
  Sex: Male

DRUGS (4)
  1. MELPHALAN HYDROCHLORIDE [Suspect]
     Indication: MULTIPLE MYELOMA
     Dosage: 16MCG PER DAY
     Route: 048
     Dates: start: 20100414
  2. THALIDOMIDE [Suspect]
     Indication: MULTIPLE MYELOMA
     Route: 048
     Dates: start: 20100414
  3. PREDNISOLONE [Suspect]
     Indication: MULTIPLE MYELOMA
     Dosage: 124MCG PER DAY
     Route: 065
     Dates: start: 20100414
  4. ASPEGIC 1000 [Concomitant]
     Indication: PROPHYLAXIS

REACTIONS (4)
  - GENERAL PHYSICAL HEALTH DETERIORATION [None]
  - OROPHARYNGITIS FUNGAL [None]
  - VOMITING [None]
  - WEIGHT DECREASED [None]
